FAERS Safety Report 5525854-7 (Version None)
Quarter: 2007Q4

REPORT INFORMATION
  Report Type: 
  Country: None (occurrence: None)
  Receive Date: 20071126
  Receipt Date: 20071114
  Transmission Date: 20080405
  Serious: Yes (Hospitalization)
  Sender: FDA-Public Use
  Company Number: ES-AVENTIS-200715063EU

PATIENT
  Age: 75 Year
  Sex: Female

DRUGS (2)
  1. CLEXANE [Suspect]
     Indication: SURGERY
     Route: 058
     Dates: start: 20070801, end: 20070915
  2. SINTROM [Concomitant]

REACTIONS (9)
  - HEPATOCELLULAR DAMAGE [None]
  - HYPOVOLAEMIA [None]
  - INCORRECT ROUTE OF DRUG ADMINISTRATION [None]
  - MUSCLE HAEMORRHAGE [None]
  - MUSCLE NECROSIS [None]
  - PAIN [None]
  - PLEURAL EFFUSION [None]
  - RENAL FAILURE ACUTE [None]
  - URINARY INCONTINENCE [None]
